FAERS Safety Report 13648454 (Version 1)
Quarter: 2017Q2

REPORT INFORMATION
  Report Type: Spontaneous
  Country: FR (occurrence: FR)
  Receive Date: 20170613
  Receipt Date: 20170613
  Transmission Date: 20170830
  Serious: Yes (Other)
  Sender: FDA-Public Use
  Company Number: FR-BAYER-2017-110284

PATIENT
  Age: 32 Year
  Sex: Female

DRUGS (1)
  1. MIRENA [Suspect]
     Active Substance: LEVONORGESTREL
     Indication: CHEMICAL CONTRACEPTION
     Dosage: 20 MCG/24HR, CONT
     Route: 015
     Dates: start: 20130506, end: 20170506

REACTIONS (10)
  - Asthenia [Unknown]
  - Night sweats [Unknown]
  - Headache [Unknown]
  - Vertigo [Unknown]
  - Acne [Unknown]
  - Breast pain [Unknown]
  - Raynaud^s phenomenon [Unknown]
  - Hypertrichosis [Unknown]
  - Depression [Unknown]
  - Weight decreased [Unknown]

NARRATIVE: CASE EVENT DATE: 2013
